FAERS Safety Report 13285575 (Version 1)
Quarter: 2017Q1

REPORT INFORMATION
  Report Type: Spontaneous
  Country: US (occurrence: US)
  Receive Date: 20170302
  Receipt Date: 20170302
  Transmission Date: 20170428
  Serious: No
  Sender: FDA-Public Use
  Company Number: US-009507513-1702USA008473

PATIENT
  Sex: Female

DRUGS (1)
  1. DULERA [Suspect]
     Active Substance: FORMOTEROL FUMARATE DIHYDRATE\MOMETASONE FUROATE
     Indication: ASTHMA
     Dosage: 200/5MCG, ORAL INHALATION

REACTIONS (6)
  - Tremor [Not Recovered/Not Resolved]
  - Product closure issue [Not Recovered/Not Resolved]
  - Drug dose omission [Not Recovered/Not Resolved]
  - Dyspnoea [Not Recovered/Not Resolved]
  - Product packaging quantity issue [Not Recovered/Not Resolved]
  - Drug ineffective [Not Recovered/Not Resolved]
